FAERS Safety Report 24360310 (Version 5)
Quarter: 2025Q1

REPORT INFORMATION
  Report Type: Report from Study
  Country: DE (occurrence: DE)
  Receive Date: 20240925
  Receipt Date: 20250228
  Transmission Date: 20250409
  Serious: Yes (Hospitalization)
  Sender: INSMED
  Company Number: DE-INSMED, INC.-2024-03687-DE

PATIENT
  Age: 66 Year
  Sex: Female

DRUGS (2)
  1. ARIKAYCE [Suspect]
     Active Substance: AMIKACIN
     Indication: Atypical mycobacterial infection
     Dosage: 590 MILLIGRAM, QD
     Route: 055
     Dates: start: 20220610, end: 2024
  2. ARIKAYCE [Suspect]
     Active Substance: AMIKACIN
     Dosage: 590 MILLIGRAM, QD
     Route: 055
     Dates: start: 20240906, end: 20250215

REACTIONS (7)
  - Hospitalisation [Unknown]
  - Skin discolouration [Not Recovered/Not Resolved]
  - Therapy interrupted [Unknown]
  - Intentional product use issue [Unknown]
  - Product preparation error [Unknown]
  - Product administration error [Unknown]
  - Drug ineffective [Unknown]
